FAERS Safety Report 18399948 (Version 5)
Quarter: 2024Q1

REPORT INFORMATION
  Report Type: Spontaneous
  Country: US (occurrence: US)
  Receive Date: 20201019
  Receipt Date: 20240112
  Transmission Date: 20240410
  Serious: No
  Sender: FDA-Public Use
  Company Number: US-PFIZER INC-2020252663

PATIENT
  Age: 77 Year
  Sex: Female
  Weight: 55.34 kg

DRUGS (3)
  1. IBRANCE [Suspect]
     Active Substance: PALBOCICLIB
     Indication: Breast cancer stage IV
     Dosage: 125 MG
  2. IBRANCE [Suspect]
     Active Substance: PALBOCICLIB
     Dosage: (125 DOSE UNITS NOT SPECIFIED WITH WATER ONCE A DAY FOR 21 DAYS AND OFF SEVEN DAYS)CYCLIC
  3. IBRANCE [Suspect]
     Active Substance: PALBOCICLIB
     Dosage: ONE TIME A DAY TAKE FOR 21 DAYS THEN 7 DAYS OFF

REACTIONS (1)
  - Aphonia [Unknown]
